FAERS Safety Report 7333581-9 (Version None)
Quarter: 2011Q1

REPORT INFORMATION
  Report Type: 
  Country: None (occurrence: None)
  Receive Date: 20110304
  Receipt Date: 20110225
  Transmission Date: 20110831
  Serious: Yes (Hospitalization)
  Sender: FDA-Public Use
  Company Number: JP-MERCK-1103USA00087

PATIENT
  Age: 70 Year
  Sex: Male

DRUGS (3)
  1. JANUVIA [Suspect]
     Indication: TYPE 2 DIABETES MELLITUS
     Route: 048
     Dates: start: 20110119
  2. ACTOS [Suspect]
     Indication: TYPE 2 DIABETES MELLITUS
     Route: 048
     Dates: start: 20110119
  3. ARTIST [Suspect]
     Indication: HYPERTENSION
     Route: 048
     Dates: start: 20110131

REACTIONS (2)
  - CEREBRAL INFARCTION [None]
  - COUGH [None]
